FAERS Safety Report 7903388-X (Version None)
Quarter: 2011Q4

REPORT INFORMATION
  Report Type: 
  Country: None (occurrence: None)
  Receive Date: 20111109
  Receipt Date: 20111031
  Transmission Date: 20120403
  Serious: Yes (Hospitalization)
  Sender: FDA-Public Use
  Company Number: JP-ASTRAZENECA-2011SE63308

PATIENT
  Age: 26938 Day
  Sex: Male

DRUGS (11)
  1. PLACEBO [Suspect]
     Indication: ACUTE CORONARY SYNDROME
     Route: 048
     Dates: start: 20110930
  2. LANSOPRAZOLE [Concomitant]
     Indication: GASTRITIS PROPHYLAXIS
     Route: 048
     Dates: start: 20110930
  3. LIVALO [Concomitant]
     Indication: HYPERLIPIDAEMIA
     Route: 048
     Dates: start: 20110930
  4. SIGMART [Concomitant]
     Indication: ANGINA PECTORIS
     Route: 042
     Dates: start: 20111002
  5. AMIODARONE HCL [Suspect]
     Indication: VENTRICULAR FIBRILLATION
     Route: 042
     Dates: start: 20110930, end: 20111004
  6. ASPIRIN [Suspect]
     Indication: ACUTE CORONARY SYNDROME
     Route: 048
     Dates: start: 20110930
  7. AMIODARONE HCL [Suspect]
     Route: 048
     Dates: start: 20111002
  8. PLAVIX [Suspect]
     Indication: ACUTE CORONARY SYNDROME
     Route: 048
     Dates: start: 20110930
  9. ASPIRIN [Suspect]
     Route: 048
     Dates: start: 20111001
  10. LOSARTAN POTASSIUM [Concomitant]
     Indication: CARDIAC FAILURE
     Route: 048
     Dates: start: 20111005
  11. CARVEDILOL [Concomitant]
     Indication: CARDIAC FAILURE
     Route: 048
     Dates: start: 20111012

REACTIONS (1)
  - HEPATIC FUNCTION ABNORMAL [None]
